FAERS Safety Report 5053416-7 (Version None)
Quarter: 2006Q2

REPORT INFORMATION
  Report Type: 
  Country: None (occurrence: None)
  Receive Date: 20060614
  Receipt Date: 20060301
  Transmission Date: 20061013
  Serious: Yes (Other)
  Sender: FDA-Public Use
  Company Number: 439070

PATIENT
  Sex: Male

DRUGS (2)
  1. BONIVA [Suspect]
     Indication: DRUG USE FOR UNKNOWN INDICATION
     Dosage: ORAL
     Route: 048
  2. PREVACID [Concomitant]

REACTIONS (2)
  - ARTHRALGIA [None]
  - DRUG ADMINISTRATION ERROR [None]
